FAERS Safety Report 15485399 (Version 1)
Quarter: 2018Q4

REPORT INFORMATION
  Report Type: Spontaneous
  Country: US (occurrence: US)
  Receive Date: 20181010
  Receipt Date: 20181010
  Transmission Date: 20190205
  Serious: No
  Sender: FDA-Public Use
  Company Number: US-ROCHE-2166076

PATIENT
  Age: 59 Year
  Sex: Male

DRUGS (4)
  1. ASPIRIN. [Concomitant]
     Active Substance: ASPIRIN
  2. RAMIPRIL. [Concomitant]
     Active Substance: RAMIPRIL
  3. COREG [Concomitant]
     Active Substance: CARVEDILOL
  4. ESBRIET [Suspect]
     Active Substance: PIRFENIDONE
     Indication: IDIOPATHIC PULMONARY FIBROSIS
     Dosage: 3 TABS TID, ONGOING: YES
     Route: 048
     Dates: start: 20180706

REACTIONS (1)
  - Constipation [Unknown]

NARRATIVE: CASE EVENT DATE: 20180706
